FAERS Safety Report 9315577 (Version 1)
Quarter: 2013Q2

REPORT INFORMATION
  Report Type: Report from Study
  Country: US (occurrence: US)
  Receive Date: 20130529
  Receipt Date: 20130529
  Transmission Date: 20140414
  Serious: Yes (Hospitalization)
  Sender: FDA-Public Use
  Company Number: US-ABBOTT-13P-163-1093253-00

PATIENT
  Age: 84 Year
  Sex: Female
  Weight: 56.75 kg

DRUGS (11)
  1. HUMIRA [Suspect]
     Indication: RHEUMATOID ARTHRITIS
     Dates: start: 2003, end: 201303
  2. CITOLOPRAM [Concomitant]
     Indication: DEPRESSION
  3. PREVASTATIN [Concomitant]
     Indication: PRODUCT USED FOR UNKNOWN INDICATION
  4. PHENYTOIN [Concomitant]
     Indication: CONVULSION
  5. LISINOPRIL [Concomitant]
     Indication: CORONARY ARTERIAL STENT INSERTION
  6. ALENDRONATE [Concomitant]
     Indication: BONE DISORDER
  7. MIRTAZAPINE [Concomitant]
     Indication: DECREASED APPETITE
  8. VICODIN [Concomitant]
     Indication: PAIN
  9. BAYER ASPIRIN [Concomitant]
     Indication: ANTICOAGULANT THERAPY
  10. LORAZEPAM [Concomitant]
     Indication: SEDATIVE THERAPY
  11. VITAMIN D [Concomitant]
     Indication: ARTHRITIS

REACTIONS (3)
  - Rhinorrhoea [Recovered/Resolved]
  - Bronchitis [Recovered/Resolved]
  - Blood glucose increased [Recovered/Resolved]
